FAERS Safety Report 6161949-5 (Version None)
Quarter: 2009Q2

REPORT INFORMATION
  Report Type: 
  Country: None (occurrence: None)
  Receive Date: 20090417
  Receipt Date: 20090417
  Transmission Date: 20091009
  Serious: No
  Sender: FDA-Public Use
  Company Number: None

PATIENT
  Age: 67 Year
  Sex: Female
  Weight: 55.3388 kg

DRUGS (2)
  1. LEVAQUIN [Suspect]
     Indication: ACUTE SINUSITIS
     Dosage: 1 TABLET DAILY X 5 DAYS DAILY PO; PHYSICAL THERAPY X 3 WEEKLY X 2 WEEKS
     Route: 048
     Dates: start: 20090217, end: 20090221
  2. LEVAQUIN [Suspect]
     Indication: PNEUMONIA
     Dosage: 1 TABLET DAILY X 5 DAYS DAILY PO; PHYSICAL THERAPY X 3 WEEKLY X 2 WEEKS
     Route: 048
     Dates: start: 20090217, end: 20090221

REACTIONS (8)
  - IMPAIRED DRIVING ABILITY [None]
  - MOVEMENT DISORDER [None]
  - MUSCULOSKELETAL PAIN [None]
  - MYALGIA [None]
  - NECK PAIN [None]
  - NO THERAPEUTIC RESPONSE [None]
  - PAIN IN EXTREMITY [None]
  - UNEVALUABLE EVENT [None]
